FAERS Safety Report 6747008-9 (Version None)
Quarter: 2010Q2

REPORT INFORMATION
  Report Type: 
  Country: None (occurrence: None)
  Receive Date: 20100528
  Receipt Date: 20100518
  Transmission Date: 20101027
  Serious: Yes (Life-Threatening, Hospitalization, Other)
  Sender: FDA-Public Use
  Company Number: PHEH2010US03376

PATIENT
  Sex: Female

DRUGS (11)
  1. RECLAST [Suspect]
     Dosage: UNK
     Route: 042
     Dates: start: 20100223
  2. ARIMIDEX [Concomitant]
     Dosage: 1 MG
  3. CATAFLAM [Concomitant]
     Dosage: 50 MG
     Route: 048
  4. BENICAR [Concomitant]
     Dosage: 40 MG
     Route: 048
  5. GLUCOTROL [Concomitant]
  6. ACE INHIBITOR NOS [Concomitant]
  7. ANTINEOPLASTIC AGENTS [Concomitant]
  8. ANALGESICS [Concomitant]
  9. VICODIN [Concomitant]
  10. MORPHINE [Concomitant]
     Dosage: 4 MG
  11. DILAUDID [Concomitant]
     Dosage: 1 MG

REACTIONS (15)
  - ABASIA [None]
  - ARTHRALGIA [None]
  - BLOOD CALCIUM DECREASED [None]
  - BLOOD CHLORIDE DECREASED [None]
  - BLOOD GLUCOSE INCREASED [None]
  - FEELING ABNORMAL [None]
  - FLANK PAIN [None]
  - GAIT DISTURBANCE [None]
  - HAEMATOCRIT DECREASED [None]
  - HYPOTENSION [None]
  - LYMPHOCYTE COUNT INCREASED [None]
  - OEDEMA [None]
  - PAIN [None]
  - RASH [None]
  - RENAL FAILURE [None]
